FAERS Safety Report 18853794 (Version 1)
Quarter: 2021Q1

REPORT INFORMATION
  Report Type: Report from Study
  Country: CA (occurrence: CA)
  Receive Date: 20210205
  Receipt Date: 20210205
  Transmission Date: 20210420
  Serious: Yes (Other)
  Sender: FDA-Public Use
  Company Number: CA-JNJFOC-20210146463

PATIENT
  Age: 39 Year
  Sex: Female
  Weight: 80 kg

DRUGS (1)
  1. REMICADE [Suspect]
     Active Substance: INFLIXIMAB
     Indication: CROHN^S DISEASE
     Route: 042

REACTIONS (10)
  - Off label use [Unknown]
  - Intestinal obstruction [Unknown]
  - Arthritis [Unknown]
  - Constipation [Recovered/Resolved]
  - Intestinal resection [Unknown]
  - Joint range of motion decreased [Unknown]
  - Product use issue [Unknown]
  - Vomiting [Recovered/Resolved]
  - Fibromyalgia [Unknown]
  - Mobility decreased [Unknown]

NARRATIVE: CASE EVENT DATE: 2020
